FAERS Safety Report 14608509 (Version 2)
Quarter: 2018Q1

REPORT INFORMATION
  Report Type: Spontaneous
  Country: CA (occurrence: CA)
  Receive Date: 20180307
  Receipt Date: 20180323
  Transmission Date: 20180509
  Serious: Yes (Other)
  Sender: FDA-Public Use
  Company Number: CA-ASTRAZENECA-2018SE26422

PATIENT
  Age: 63 Year
  Sex: Female

DRUGS (8)
  1. FASLODEX [Concomitant]
     Active Substance: FULVESTRANT
     Route: 030
     Dates: start: 201802
  2. IBRANCE [Concomitant]
     Active Substance: PALBOCICLIB
     Indication: BREAST CANCER METASTATIC
     Dosage: 125 MG DAILY 21 DAYS ON AND THEN 7 DAYS OFF
     Route: 048
  3. ARIMIDEX [Suspect]
     Active Substance: ANASTROZOLE
     Route: 048
     Dates: start: 201509, end: 201608
  4. AROMASIN [Concomitant]
     Active Substance: EXEMESTANE
     Dosage: FOR 30 DAYS
     Route: 065
     Dates: start: 201610, end: 201711
  5. TAMOXIFEN [Suspect]
     Active Substance: TAMOXIFEN
     Route: 048
     Dates: start: 201209
  6. AROMASIN [Concomitant]
     Active Substance: EXEMESTANE
     Dosage: FOR 30 DAYS
     Route: 065
     Dates: start: 201504
  7. ARIMIDEX [Suspect]
     Active Substance: ANASTROZOLE
     Route: 048
     Dates: start: 201209, end: 201502
  8. AROMASIN [Concomitant]
     Active Substance: EXEMESTANE
     Dosage: FOR 30 DAYS
     Route: 065
     Dates: end: 201801

REACTIONS (5)
  - Insomnia [Unknown]
  - Arthralgia [Unknown]
  - Metastases to liver [Unknown]
  - Gastric disorder [Unknown]
  - Malignant neoplasm progression [Unknown]

NARRATIVE: CASE EVENT DATE: 201801
